FAERS Safety Report 5913714-9 (Version None)
Quarter: 2008Q3

REPORT INFORMATION
  Report Type: 
  Country: None (occurrence: None)
  Receive Date: 20080909
  Receipt Date: 20071018
  Transmission Date: 20090109
  Serious: Yes (Death, Other)
  Sender: FDA-Public Use
  Company Number: 163-20785-07081357 (0)

PATIENT
  Age: 66 Year
  Sex: Female

DRUGS (1)
  1. THALOMID [Suspect]
     Indication: MULTIPLE MYELOMA
     Dosage: DAILY AT BEDTIME, ORAL
     Route: 048
     Dates: start: 20070125, end: 20070416

REACTIONS (2)
  - DEATH [None]
  - PULMONARY EMBOLISM [None]
